FAERS Safety Report 6644356-8 (Version None)
Quarter: 2010Q1

REPORT INFORMATION
  Report Type: 
  Country: None (occurrence: None)
  Receive Date: 20100318
  Receipt Date: 20100318
  Transmission Date: 20100710
  Serious: No
  Sender: FDA-Public Use
  Company Number: None

PATIENT
  Age: 58 Year
  Sex: Female
  Weight: 99.7913 kg

DRUGS (1)
  1. AZASITE [Suspect]
     Indication: EYE IRRITATION
     Dosage: 1 QHS OPHTHALMIC
     Route: 047
     Dates: start: 20091105, end: 20100312

REACTIONS (2)
  - BURNING SENSATION [None]
  - PAIN [None]
